FAERS Safety Report 4376696-X (Version None)
Quarter: 2004Q2

REPORT INFORMATION
  Report Type: 
  Country: None (occurrence: None)
  Receive Date: 20040608
  Receipt Date: 20040525
  Transmission Date: 20050107
  Serious: No
  Sender: FDA-Public Use
  Company Number: 04H-163-0262717-00

PATIENT
  Sex: Female

DRUGS (1)
  1. BUPIVACAINE HCL [Suspect]
     Indication: ANALGESIC EFFECT
     Dosage: 5 CC, EPIDURAL
     Route: 008
     Dates: start: 20040401, end: 20040401

REACTIONS (5)
  - BLOOD PRESSURE SYSTOLIC DECREASED [None]
  - DRUG EFFECT INCREASED [None]
  - HYPOAESTHESIA [None]
  - HYPOTENSION [None]
  - MOVEMENT DISORDER [None]
